FAERS Safety Report 8230203-X (Version None)
Quarter: 2012Q1

REPORT INFORMATION
  Report Type: 
  Country: None (occurrence: None)
  Receive Date: 20120321
  Receipt Date: 20120321
  Transmission Date: 20120608
  Serious: Yes (Other)
  Sender: FDA-Public Use
  Company Number: None

PATIENT
  Sex: Female

DRUGS (1)
  1. ENBREL [Suspect]
     Dosage: 50MG/ML TWICE A WEEK SQ
     Route: 058
     Dates: start: 20110406, end: 20120130

REACTIONS (1)
  - LUNG NEOPLASM [None]
